FAERS Safety Report 18197944 (Version 1)
Quarter: 2020Q3

REPORT INFORMATION
  Report Type: Spontaneous
  Country: US (occurrence: US)
  Receive Date: 20200826
  Receipt Date: 20200826
  Transmission Date: 20201103
  Serious: Yes (Other)
  Sender: FDA-Public Use
  Company Number: None

PATIENT
  Age: 67 Year
  Sex: Male
  Weight: 143.6 kg

DRUGS (1)
  1. REMDESIVIR. [Suspect]
     Active Substance: REMDESIVIR
     Indication: COVID-19

REACTIONS (5)
  - Injection site extravasation [None]
  - Infusion site oedema [None]
  - Infusion site erythema [None]
  - Burning sensation [None]
  - Extravasation [None]

NARRATIVE: CASE EVENT DATE: 20200825
